FAERS Safety Report 22160455 (Version 3)
Quarter: 2024Q3

REPORT INFORMATION
  Report Type: Spontaneous
  Country: FR (occurrence: FR)
  Receive Date: 20230331
  Receipt Date: 20240822
  Transmission Date: 20241017
  Serious: Yes (Life-Threatening, Hospitalization, Other)
  Sender: GLAXOSMITHKLINE
  Company Number: None

PATIENT

DRUGS (24)
  1. VALACYCLOVIR HYDROCHLORIDE [Suspect]
     Active Substance: VALACYCLOVIR HYDROCHLORIDE
     Indication: Bacterial infection
     Dosage: 1000 MG, QD (1000 MILLIGRAM, QD, 500MG MOR AND EVE)
     Route: 048
     Dates: start: 20230106
  2. NALOXEGOL OXALATE [Suspect]
     Active Substance: NALOXEGOL OXALATE
     Indication: Constipation
     Dosage: 25 MG, PRN (IF NECESSARY)
     Route: 048
     Dates: start: 20230211
  3. CILASTATIN SODIUM\IMIPENEM [Suspect]
     Active Substance: CILASTATIN SODIUM\IMIPENEM
     Indication: Bacterial infection
     Dosage: 800 MG, QD (800 MILLIGRAM, QD, 500MG/500MG)
     Route: 042
     Dates: start: 20230114, end: 20230208
  4. DOXORUBICIN [Suspect]
     Active Substance: DOXORUBICIN
     Indication: Diffuse large B-cell lymphoma
     Dosage: UNK 1 COURSE
     Route: 065
     Dates: start: 20221227
  5. BACTRIM [Suspect]
     Active Substance: SULFAMETHOXAZOLE\TRIMETHOPRIM
     Indication: Bacterial infection
     Dosage: 400 MG, QD (400 MILLIGRAM, QD (1 DF, 1 TAB IN THE MORNING))
     Route: 048
     Dates: start: 20230106, end: 20230303
  6. LOVENOX [Suspect]
     Active Substance: ENOXAPARIN SODIUM
     Indication: Constipation
     Dosage: 4000 IU
     Route: 058
     Dates: start: 20230210
  7. LOVENOX [Suspect]
     Active Substance: ENOXAPARIN SODIUM
     Indication: Prophylaxis
     Dosage: 4000 IU
     Route: 058
     Dates: start: 20230210
  8. SKENAN [Suspect]
     Active Substance: MORPHINE SULFATE
     Indication: Pain
     Dosage: 30 MG, BID (30 MG, BID (1 TAB SKENAN LP30MG EVERY 12 HOURS)
     Route: 048
     Dates: start: 20230210, end: 20230218
  9. METRONIDAZOLE [Suspect]
     Active Substance: METRONIDAZOLE
     Indication: Bacterial infection
     Dosage: 1500 MG, QD (1500 MILLIGRAM, QD500 MG MORNING, NOON AND EVENIN  )
     Route: 048
     Dates: start: 20230209, end: 20230303
  10. RITUXIMAB [Suspect]
     Active Substance: RITUXIMAB
     Indication: Diffuse large B-cell lymphoma
     Dosage: UNK 1 COURSE
     Route: 065
     Dates: start: 20221227
  11. ACETAMINOPHEN [Suspect]
     Active Substance: ACETAMINOPHEN
     Indication: Pain
     Dosage: 1 DF, QID 1 DF, Q6H (1 TABLET Q6H, MAXIMUM 3 TABLETS/D)
     Route: 048
     Dates: start: 20230211
  12. CIPROFLOXACIN [Suspect]
     Active Substance: CIPROFLOXACIN
     Indication: Bacterial infection
     Dosage: UNK
     Route: 065
     Dates: start: 20230203, end: 20230208
  13. VINCRISTINE [Suspect]
     Active Substance: VINCRISTINE
     Indication: Diffuse large B-cell lymphoma
     Dosage: UNK (1 COURSE)
     Route: 065
     Dates: start: 20221227
  14. AMITRIPTYLINE HYDROCHLORIDE [Suspect]
     Active Substance: AMITRIPTYLINE HYDROCHLORIDE
     Indication: Pain
     Dosage: 35 GTT, QD (1/12 MILLILITRE PER DAY35 GTT DROPS, 5 DROP MOR, 10 DROP MIDDAY AND EVEN)
     Route: 048
     Dates: start: 20221210
  15. LEUCOVORIN CALCIUM [Suspect]
     Active Substance: LEUCOVORIN CALCIUM
     Indication: Prophylaxis
     Dosage: 2 DF, 0.5 WEEK (A TAB EVERY MONDAY AND THURSDAY)
     Route: 048
     Dates: start: 20230102
  16. DAPTOMYCIN [Suspect]
     Active Substance: DAPTOMYCIN
     Indication: Bacterial infection
     Dosage: 1 G, QD
     Route: 042
     Dates: start: 20230211, end: 20230306
  17. ACUPAN [Suspect]
     Active Substance: NEFOPAM HYDROCHLORIDE
     Indication: Pain
     Dosage: UNK (ONE AMPOULE EVERY FOUR HOURS IF PAIN)
     Route: 065
     Dates: start: 20230106, end: 20230302
  18. ARANESP [Suspect]
     Active Substance: DARBEPOETIN ALFA
     Indication: Anaemia
     Dosage: 1 DF, WE 1 DOSAGE FORM, QW (300 MICROGRAM PER GRAM)   (
     Route: 058
     Dates: start: 20230213
  19. CEFTRIAXONE [Suspect]
     Active Substance: CEFTRIAXONE\CEFTRIAXONE SODIUM
     Indication: Bacterial infection
     Dosage: 2 G, QD (2 GRAM,QD1G MORNING AND EVENING   )
     Route: 048
     Dates: start: 20230209
  20. PANTOPRAZOLE [Suspect]
     Active Substance: PANTOPRAZOLE
     Indication: Gastritis prophylaxis
     Dosage: 20 MG
     Route: 048
     Dates: start: 20230106
  21. PANTOPRAZOLE [Suspect]
     Active Substance: PANTOPRAZOLE
     Indication: Constipation
  22. CYCLOPHOSPHAMIDE [Suspect]
     Active Substance: CYCLOPHOSPHAMIDE
     Indication: Diffuse large B-cell lymphoma
     Dosage: UNK (1 COURSE)
     Route: 065
     Dates: start: 20221227
  23. ALPRAZOLAM [Suspect]
     Active Substance: ALPRAZOLAM
     Indication: Anxiety
     Dosage: 0.25 MG (1TAB 0.25MG IF ANGUISH)
     Route: 048
     Dates: start: 20230106, end: 20230209
  24. CASPOFUNGIN ACETATE [Suspect]
     Active Substance: CASPOFUNGIN ACETATE
     Indication: Fungal infection
     Dosage: 70 MG
     Route: 042
     Dates: start: 20230126

REACTIONS (1)
  - Agranulocytosis [Recovered/Resolved]

NARRATIVE: CASE EVENT DATE: 20230201
